FAERS Safety Report 17970884 (Version 3)
Quarter: 2020Q4

REPORT INFORMATION
  Report Type: Spontaneous
  Country: AU (occurrence: AU)
  Receive Date: 20200702
  Receipt Date: 20201209
  Transmission Date: 20210113
  Serious: Yes (Hospitalization, Other)
  Sender: FDA-Public Use
  Company Number: AU-NOVEN PHARMACEUTICALS, INC.-AU2020000383

PATIENT
  Sex: Female

DRUGS (1)
  1. ESTRADIOL/NORETHISTRONE ACETATE [Suspect]
     Active Substance: ESTRADIOL\NORETHINDRONE ACETATE
     Indication: PRODUCT USED FOR UNKNOWN INDICATION
     Dosage: 50/140 MG
     Route: 062
     Dates: start: 201704

REACTIONS (2)
  - Squamous cell carcinoma [Unknown]
  - Erythema [Unknown]
